FAERS Safety Report 9792669 (Version 2)
Quarter: 2014Q1

REPORT INFORMATION
  Report Type: Spontaneous
  Country: US (occurrence: US)
  Receive Date: 20140102
  Receipt Date: 20140102
  Transmission Date: 20141002
  Serious: Yes (Other)
  Sender: FDA-Public Use
  Company Number: US-SA-2013SA103123

PATIENT
  Age: 57 Year
  Sex: Female
  Weight: 54.43 kg

DRUGS (3)
  1. AUBAGIO [Suspect]
     Indication: MULTIPLE SCLEROSIS
     Route: 048
     Dates: start: 201303, end: 20130813
  2. MULTIVITAMINS [Concomitant]
  3. VITAMIN D [Concomitant]

REACTIONS (1)
  - Transaminases increased [Not Recovered/Not Resolved]
